FAERS Safety Report 16053681 (Version 2)
Quarter: 2019Q1

REPORT INFORMATION
  Report Type: Report from Study
  Country: CN (occurrence: CN)
  Receive Date: 20190308
  Receipt Date: 20190325
  Transmission Date: 20190418
  Serious: Yes (Hospitalization, Other)
  Sender: FDA-Public Use
  Company Number: PHHY2016CN155142

PATIENT
  Age: 34 Year
  Sex: Female
  Weight: 55 kg

DRUGS (85)
  1. MYFORTIC [Suspect]
     Active Substance: MYCOPHENOLATE SODIUM
     Dosage: 1080 MG, QD
     Route: 065
     Dates: start: 20160402, end: 20160428
  2. BASILIXIMAB [Suspect]
     Active Substance: BASILIXIMAB
     Indication: RENAL TRANSPLANT
     Dosage: 20 MG, QD
     Route: 065
     Dates: start: 20160330, end: 20160330
  3. BASILIXIMAB [Suspect]
     Active Substance: BASILIXIMAB
     Indication: IMMUNOSUPPRESSANT DRUG THERAPY
  4. TACROLIMUS. [Suspect]
     Active Substance: TACROLIMUS
     Indication: PRODUCT USED FOR UNKNOWN INDICATION
     Dosage: 3 MG, QD
     Route: 065
     Dates: start: 20160329, end: 20160329
  5. METHYLPREDNISOLONE. [Suspect]
     Active Substance: METHYLPREDNISOLONE
     Indication: PRODUCT USED FOR UNKNOWN INDICATION
     Dosage: 500 MG, QD
     Route: 065
     Dates: start: 20160329, end: 20160329
  6. CALCIUM GLUCONATE. [Concomitant]
     Active Substance: CALCIUM GLUCONATE
     Indication: MINERAL SUPPLEMENTATION
     Dosage: 20 ML, QD
     Route: 042
     Dates: start: 20160402, end: 20160402
  7. CALCIUM GLUCONATE. [Concomitant]
     Active Substance: CALCIUM GLUCONATE
     Dosage: 20 ML, BID
     Route: 042
     Dates: start: 20160404, end: 20160404
  8. CEFOPERAZONE SODIUM AND SULBACTAM SODIUM [Concomitant]
     Active Substance: CEFOPERAZONE SODIUM\SULBACTAM SODIUM
     Dosage: 3 G, BID
     Route: 042
     Dates: start: 20160401, end: 20160414
  9. GANCICLOVIR. [Concomitant]
     Active Substance: GANCICLOVIR
     Indication: INFECTION
     Dosage: 0.5 G, TID
     Route: 048
     Dates: start: 20160413, end: 20160413
  10. INSULIN [Concomitant]
     Active Substance: INSULIN NOS
     Dosage: 4 U, 6 TIMES A DAY
     Route: 042
     Dates: start: 20160330, end: 20160330
  11. ISOSORBIDE MONONITRATE. [Concomitant]
     Active Substance: ISOSORBIDE MONONITRATE
     Indication: CARDIAC DISORDER
     Dosage: 10 MG, QD
     Route: 042
     Dates: start: 20160330, end: 20160330
  12. ISOSORBIDE MONONITRATE. [Concomitant]
     Active Substance: ISOSORBIDE MONONITRATE
     Dosage: 50 MG, QD, IVGTT VIA INFUSION PUMP
     Route: 042
     Dates: start: 20160401, end: 20160401
  13. MIDAZOLAM [Concomitant]
     Active Substance: MIDAZOLAM HYDROCHLORIDE
     Indication: ANAESTHESIA
     Dosage: 5 MG, QD
     Route: 042
     Dates: start: 20160330, end: 20160330
  14. NICARDIPINE HYDROCHLORIDE. [Concomitant]
     Active Substance: NICARDIPINE HYDROCHLORIDE
     Dosage: 40 MG, Q12H
     Route: 048
     Dates: start: 20160403
  15. NIFEDIPINE. [Concomitant]
     Active Substance: NIFEDIPINE
     Indication: BLOOD PRESSURE INCREASED
     Dosage: 5 MG, QD
     Route: 060
     Dates: start: 20160331, end: 20160331
  16. NIFEDIPINE. [Concomitant]
     Active Substance: NIFEDIPINE
     Dosage: 10 MG, QD
     Route: 048
     Dates: start: 20160331, end: 20160401
  17. POTASSIUM CHLORIDE. [Concomitant]
     Active Substance: POTASSIUM CHLORIDE
     Indication: MINERAL SUPPLEMENTATION
     Dosage: 10 ML, BID
     Route: 042
     Dates: start: 20160331, end: 20160331
  18. POTASSIUM CHLORIDE. [Concomitant]
     Active Substance: POTASSIUM CHLORIDE
     Dosage: 10 ML, QD
     Route: 042
     Dates: start: 20160402, end: 20160402
  19. TRAMADOL HYDROCHLORIDE. [Concomitant]
     Active Substance: TRAMADOL HYDROCHLORIDE
     Indication: PAIN
     Dosage: 0.1 G, QD
     Route: 030
     Dates: start: 20160401, end: 20160401
  20. SUCCINYLATED GELATIN [Concomitant]
     Active Substance: SUCCINYLATED GELATIN
     Indication: ANAESTHESIA
     Dosage: 1000 ML, QD
     Route: 042
     Dates: start: 20160330, end: 20160330
  21. AMLODIPINE BESYLATE. [Concomitant]
     Active Substance: AMLODIPINE BESYLATE
     Indication: PRODUCT USED FOR UNKNOWN INDICATION
     Dosage: 10 MG, QD
     Route: 048
     Dates: start: 20160503, end: 20161127
  22. TACROLIMUS. [Suspect]
     Active Substance: TACROLIMUS
     Dosage: 6 MG, QD
     Route: 065
     Dates: start: 20160330, end: 20160402
  23. TACROLIMUS. [Suspect]
     Active Substance: TACROLIMUS
     Dosage: 6 MG, QD
     Route: 065
     Dates: start: 20160414
  24. METHYLPREDNISOLONE. [Suspect]
     Active Substance: METHYLPREDNISOLONE
     Dosage: 80 MG, QD
     Route: 065
     Dates: start: 20160401, end: 20160401
  25. CEFOXITIN SODIUM [Concomitant]
     Active Substance: CEFOXITIN SODIUM
     Indication: INFECTION PROPHYLAXIS
     Dosage: 2 G, QD (IV BEFORE THE SURGERY OF NOT TYPE I)
     Route: 042
     Dates: start: 20160329, end: 20160329
  26. FELODIPINE. [Concomitant]
     Active Substance: FELODIPINE
     Indication: BLOOD PRESSURE INCREASED
     Dosage: 5 MG, BID
     Route: 048
     Dates: start: 20160401
  27. MAGNESIUM ISOGLYCYRRHIZINATE [Concomitant]
     Active Substance: MAGNESIUM ISOGLYCYRRHIZINATE
     Indication: LIVER DISORDER
     Dosage: 100 MG, QD
     Route: 042
     Dates: start: 20160401, end: 20160407
  28. NICARDIPINE HYDROCHLORIDE. [Concomitant]
     Active Substance: NICARDIPINE HYDROCHLORIDE
     Indication: BLOOD PRESSURE INCREASED
     Dosage: 40 MG, BID
     Route: 048
     Dates: start: 20160413, end: 20160413
  29. METHYLPREDNISOLONE. [Concomitant]
     Active Substance: METHYLPREDNISOLONE
     Indication: PRODUCT USED FOR UNKNOWN INDICATION
     Dosage: 16 MG, QD
     Route: 048
     Dates: start: 20160418, end: 20161111
  30. MYFORTIC [Suspect]
     Active Substance: MYCOPHENOLATE SODIUM
     Indication: RENAL TRANSPLANT
     Dosage: 720 MG, QD
     Route: 065
     Dates: start: 20160329, end: 20160329
  31. TACROLIMUS. [Suspect]
     Active Substance: TACROLIMUS
     Dosage: 7 MG, QD
     Route: 065
     Dates: start: 20160403, end: 20160406
  32. TACROLIMUS. [Suspect]
     Active Substance: TACROLIMUS
     Dosage: 11 MG, QD
     Route: 065
     Dates: start: 20160413, end: 20160413
  33. CEFOPERAZONE SODIUM AND SULBACTAM SODIUM [Concomitant]
     Active Substance: CEFOPERAZONE SODIUM\SULBACTAM SODIUM
     Dosage: 1.5 G, QD
     Route: 042
     Dates: start: 20160331, end: 20160331
  34. ISOSORBIDE MONONITRATE. [Concomitant]
     Active Substance: ISOSORBIDE MONONITRATE
     Dosage: 50 MG, 5 TIMES A DAY
     Route: 042
     Dates: start: 20160331, end: 20160331
  35. ISOSORBIDE MONONITRATE. [Concomitant]
     Active Substance: ISOSORBIDE MONONITRATE
     Dosage: 50 MG, TID
     Route: 042
     Dates: start: 20160403, end: 20160403
  36. NEOSTIGMINE METHYLSULFATE. [Concomitant]
     Active Substance: NEOSTIGMINE METHYLSULFATE
     Indication: ANAESTHESIA
     Dosage: 2 MG, QD
     Route: 042
     Dates: start: 20160330, end: 20160330
  37. POTASSIUM CHLORIDE. [Concomitant]
     Active Substance: POTASSIUM CHLORIDE
     Indication: PRODUCT USED FOR UNKNOWN INDICATION
     Dosage: 1 G, BID
     Route: 048
     Dates: start: 20160404
  38. TRAMADOL HYDROCHLORIDE. [Concomitant]
     Active Substance: TRAMADOL HYDROCHLORIDE
     Dosage: 0.1 G, QD
     Route: 042
     Dates: start: 20160330, end: 20160330
  39. MYFORTIC [Suspect]
     Active Substance: MYCOPHENOLATE SODIUM
     Dosage: 1080 MG, QD
     Route: 065
     Dates: start: 20160402, end: 20160412
  40. METHYLPREDNISOLONE. [Suspect]
     Active Substance: METHYLPREDNISOLONE
     Dosage: 40 MG, QD
     Route: 065
     Dates: start: 20160402, end: 20160403
  41. PREDNISONE. [Suspect]
     Active Substance: PREDNISONE
     Indication: PRODUCT USED FOR UNKNOWN INDICATION
     Dosage: 25 MG, QD
     Route: 065
     Dates: start: 20160411, end: 20160411
  42. CISATRACURIUM BESILATE [Concomitant]
     Active Substance: CISATRACURIUM BESYLATE
     Indication: ANAESTHESIA
     Dosage: 15 MG, QD
     Route: 042
     Dates: start: 20160330, end: 20160330
  43. DIPHENHYDRAMINE HCL [Concomitant]
     Active Substance: DIPHENHYDRAMINE HYDROCHLORIDE
     Indication: VOMITING
     Dosage: 20 MG, QD
     Route: 030
     Dates: start: 20160401, end: 20160401
  44. TRAMADOL HYDROCHLORIDE. [Concomitant]
     Active Substance: TRAMADOL HYDROCHLORIDE
     Dosage: 15 MG, QD
     Route: 042
     Dates: start: 20160330, end: 20160330
  45. AMLODIPINE BESYLATE. [Concomitant]
     Active Substance: AMLODIPINE BESYLATE
     Dosage: 5 MG, BID
     Route: 048
     Dates: start: 20161128
  46. CEFUROXIME AXETIL. [Concomitant]
     Active Substance: CEFUROXIME AXETIL
     Indication: PRODUCT USED FOR UNKNOWN INDICATION
     Dosage: 0.25 G, QD
     Route: 048
     Dates: start: 20160425, end: 20160502
  47. MYFORTIC [Suspect]
     Active Substance: MYCOPHENOLATE SODIUM
     Dosage: 1440 MG, QD
     Route: 065
     Dates: start: 20160331, end: 20160401
  48. CEFDINIR. [Concomitant]
     Active Substance: CEFDINIR
     Indication: INFECTION
     Dosage: 100 MG, TID
     Route: 048
     Dates: start: 20160413, end: 20160413
  49. CEFOXITIN SODIUM [Concomitant]
     Active Substance: CEFOXITIN SODIUM
     Dosage: 2 MG, TID
     Route: 042
     Dates: start: 20160331
  50. FUROSEMIDE. [Concomitant]
     Active Substance: FUROSEMIDE
     Dosage: 20 MG, QD (IVGTT VIA POT)
     Route: 042
     Dates: start: 20160406, end: 20160406
  51. GENTAMICIN SULFATE. [Concomitant]
     Active Substance: GENTAMICIN SULFATE
     Indication: INFECTION
     Dosage: 0.16 MIU, QD
     Route: 042
     Dates: start: 20160330, end: 20160330
  52. INSULIN [Concomitant]
     Active Substance: INSULIN NOS
     Dosage: 6 U, BID
     Route: 042
     Dates: start: 20160401, end: 20160401
  53. MOSAPRIDE CITRATE [Concomitant]
     Active Substance: MOSAPRIDE CITRATE
     Indication: BOWEL MOVEMENT IRREGULARITY
     Dosage: 5 MG, TID
     Route: 048
     Dates: start: 20160402, end: 20160406
  54. NIFEDIPINE. [Concomitant]
     Active Substance: NIFEDIPINE
     Dosage: 10 MG, QD
     Route: 060
     Dates: start: 20160331, end: 20160331
  55. PANTOPRAZOLE SODIUM. [Concomitant]
     Active Substance: PANTOPRAZOLE SODIUM
     Indication: GASTRITIS PROPHYLAXIS
     Dosage: 40 MG, BID
     Route: 042
     Dates: start: 20160330, end: 20160330
  56. METHYLPREDNISOLONE. [Concomitant]
     Active Substance: METHYLPREDNISOLONE
     Dosage: 16 MG, QD
     Route: 048
     Dates: start: 20161128, end: 20170314
  57. TACROLIMUS. [Suspect]
     Active Substance: TACROLIMUS
     Dosage: 6 MG, QD
     Route: 065
     Dates: start: 20160406, end: 20160412
  58. TACROLIMUS. [Suspect]
     Active Substance: TACROLIMUS
     Dosage: 0.5 MG, QD
     Route: 065
     Dates: start: 20160411, end: 20160411
  59. CEFOPERAZONE SODIUM AND SULBACTAM SODIUM [Concomitant]
     Active Substance: CEFOPERAZONE SODIUM\SULBACTAM SODIUM
     Indication: INFLAMMATION
     Dosage: 1.5 G, BID
     Route: 042
     Dates: start: 20160331, end: 20160331
  60. CEFOXITIN SODIUM [Concomitant]
     Active Substance: CEFOXITIN SODIUM
     Dosage: 2 G, BID
     Route: 042
     Dates: start: 20160330, end: 20160330
  61. INSULIN [Concomitant]
     Active Substance: INSULIN NOS
     Indication: BLOOD GLUCOSE INCREASED
     Dosage: 24 U, QD
     Route: 042
     Dates: start: 20160330, end: 20160330
  62. PROPOFOL. [Concomitant]
     Active Substance: PROPOFOL
     Indication: ANAESTHESIA
     Dosage: 0.2 G, QD
     Route: 042
     Dates: start: 20160330, end: 20160330
  63. METHYLPREDNISOLONE. [Suspect]
     Active Substance: METHYLPREDNISOLONE
     Dosage: 500 MG, QD
     Route: 065
     Dates: start: 20160330, end: 20160331
  64. ESOMEPRAZOLE MAGNESIUM. [Concomitant]
     Active Substance: ESOMEPRAZOLE MAGNESIUM
     Indication: GASTRITIS PROPHYLAXIS
     Dosage: 20 MG, QD
     Route: 048
     Dates: start: 20160408
  65. FUROSEMIDE. [Concomitant]
     Active Substance: FUROSEMIDE
     Indication: POLYURIA
     Dosage: 20 MG, QD (IVGTT VIA POT)
     Route: 042
     Dates: start: 20160402, end: 20160403
  66. GANCICLOVIR. [Concomitant]
     Active Substance: GANCICLOVIR
     Dosage: 1 G, TID
     Route: 048
     Dates: start: 20160921
  67. GENTAMICIN SULFATE. [Concomitant]
     Active Substance: GENTAMICIN SULFATE
     Indication: BACTERIAL INFECTION
     Dosage: 0.8 MIU, QD
     Route: 042
     Dates: start: 20160331, end: 20160331
  68. ISOSORBIDE MONONITRATE. [Concomitant]
     Active Substance: ISOSORBIDE MONONITRATE
     Dosage: 50 MG, 4 TIMES A DAY
     Dates: start: 20160401, end: 20160401
  69. ISOSORBIDE MONONITRATE. [Concomitant]
     Active Substance: ISOSORBIDE MONONITRATE
     Dosage: 50 MG, BID
     Route: 042
     Dates: start: 20160402, end: 20160402
  70. ISOSORBIDE MONONITRATE. [Concomitant]
     Active Substance: ISOSORBIDE MONONITRATE
     Dosage: 50 MG, QD
     Route: 042
     Dates: start: 20160404, end: 20160404
  71. METOPROLOL TARTRATE. [Concomitant]
     Active Substance: METOPROLOL TARTRATE
     Indication: BLOOD PRESSURE INCREASED
     Dosage: 25 MG, QD
     Route: 048
     Dates: start: 20160402
  72. POTASSIUM CHLORIDE. [Concomitant]
     Active Substance: POTASSIUM CHLORIDE
     Dosage: 10 ML, BID
     Route: 042
     Dates: start: 20160404, end: 20160404
  73. TIOPRONIN [Concomitant]
     Active Substance: TIOPRONIN
     Indication: LIVER DISORDER
     Dosage: 0.2 G, TID
     Route: 042
     Dates: start: 20160330, end: 20160330
  74. SUFENTANIL CITRATE. [Concomitant]
     Active Substance: SUFENTANIL CITRATE
     Indication: ANAESTHESIA
     Dosage: 150 UG, QD
     Route: 042
     Dates: start: 20160330, end: 20160330
  75. MYFORTIC [Suspect]
     Active Substance: MYCOPHENOLATE SODIUM
     Indication: IMMUNOSUPPRESSANT DRUG THERAPY
     Dosage: 1440 MG, QD
     Route: 048
     Dates: start: 20160330, end: 20160330
  76. MYFORTIC [Suspect]
     Active Substance: MYCOPHENOLATE SODIUM
     Dosage: 720 MG, QD
     Route: 065
     Dates: start: 20160429
  77. METHYLPREDNISOLONE. [Suspect]
     Active Substance: METHYLPREDNISOLONE
     Dosage: 40 MG, QD
     Route: 065
     Dates: start: 20160403, end: 20160403
  78. METHYLPREDNISOLONE. [Suspect]
     Active Substance: METHYLPREDNISOLONE
     Dosage: 80 MG, QD
     Route: 065
     Dates: start: 20160406, end: 20160406
  79. ESOMEPRAZOLE MAGNESIUM. [Concomitant]
     Active Substance: ESOMEPRAZOLE MAGNESIUM
     Dosage: 20 MG, QD
     Route: 048
     Dates: start: 20160413, end: 20160413
  80. GANCICLOVIR. [Concomitant]
     Active Substance: GANCICLOVIR
     Dosage: 0.5 G, TID
     Route: 048
     Dates: start: 20160418, end: 20180518
  81. HEPARIN SODIUM. [Concomitant]
     Active Substance: HEPARIN SODIUM
     Indication: PROPHYLAXIS
     Dosage: 25000 U, QD
     Route: 058
     Dates: start: 20160330, end: 20160330
  82. LIDOCAINE HYDROCHLORIDE. [Concomitant]
     Active Substance: LIDOCAINE HYDROCHLORIDE
     Indication: ANAESTHESIA
     Dosage: 10 ML, QD
     Route: 042
     Dates: start: 20160330, end: 20160330
  83. NORADRENALIN [Concomitant]
     Active Substance: NOREPINEPHRINE\NOREPINEPHRINE BITARTRATE
     Indication: BLOOD PRESSURE INCREASED
     Dosage: 2 MG, QD
     Route: 042
     Dates: start: 20160330, end: 20160330
  84. REMIFENTANIL HYDROCHLORIDE. [Concomitant]
     Active Substance: REMIFENTANIL HYDROCHLORIDE
     Indication: ANAESTHESIA
     Dosage: 2 MG, QD
     Route: 042
     Dates: start: 20160330, end: 20160330
  85. SODIUM LACTATE. [Concomitant]
     Active Substance: SODIUM LACTATE
     Indication: FLUID REPLACEMENT
     Dosage: 500 ML, UNK (6 TIMES IN DAY AS REPORTED)
     Route: 042
     Dates: start: 20160402, end: 20160402

REACTIONS (22)
  - Concomitant disease aggravated [Recovered/Resolved with Sequelae]
  - Neutrophil count increased [Recovered/Resolved]
  - Blood potassium decreased [Recovered/Resolved]
  - Chills [Recovering/Resolving]
  - Leukopenia [Recovered/Resolved]
  - Aspartate aminotransferase increased [Recovered/Resolved]
  - Pyrexia [Recovered/Resolved]
  - Leukopenia [Recovered/Resolved]
  - Blood magnesium decreased [Not Recovered/Not Resolved]
  - Myalgia [Recovering/Resolving]
  - Blood glucose increased [Recovered/Resolved with Sequelae]
  - Blood calcium decreased [Recovered/Resolved]
  - Blood albumin decreased [Recovered/Resolved]
  - Blood chloride increased [Recovered/Resolved]
  - Pneumocystis jirovecii pneumonia [Recovered/Resolved]
  - Leukopenia [Recovered/Resolved]
  - Lymphocyte count decreased [Recovered/Resolved]
  - Blood phosphorus decreased [Recovered/Resolved]
  - Pneumonia bacterial [Recovered/Resolved]
  - Cytomegalovirus infection [Recovering/Resolving]
  - Peptic ulcer [Unknown]
  - Epstein-Barr virus infection [Recovered/Resolved]

NARRATIVE: CASE EVENT DATE: 20160401
